FAERS Safety Report 8529438-8 (Version None)
Quarter: 2012Q3

REPORT INFORMATION
  Report Type: 
  Country: None (occurrence: None)
  Receive Date: 20120723
  Receipt Date: 20120713
  Transmission Date: 20120928
  Serious: Yes (Other)
  Sender: FDA-Public Use
  Company Number: US-BAYER-2012-071804

PATIENT
  Age: 27 Year
  Sex: Female
  Weight: 112.47 kg

DRUGS (3)
  1. [UNSPECIFIED] INHALERS [Concomitant]
  2. YASMIN [Suspect]
  3. YAZ [Suspect]

REACTIONS (1)
  - CHOLECYSTITIS CHRONIC [None]
